FAERS Safety Report 14948748 (Version 1)
Quarter: 2018Q2

REPORT INFORMATION
  Report Type: Spontaneous
  Country: SE (occurrence: SE)
  Receive Date: 20180529
  Receipt Date: 20180529
  Transmission Date: 20180711
  Serious: Yes (Disabling, Other)
  Sender: FDA-Public Use
  Company Number: SE-PFIZER INC-2018218015

PATIENT
  Sex: Female
  Weight: 90 kg

DRUGS (4)
  1. VITAEPRO [Concomitant]
     Dosage: UNK
     Dates: start: 20100101
  2. VENLAFAXINE HCL [Suspect]
     Active Substance: VENLAFAXINE HYDROCHLORIDE
     Indication: BURNOUT SYNDROME
     Dosage: 150 MG, 1X/DAY
     Dates: start: 20020105, end: 20180309
  3. METOPROLOL. [Concomitant]
     Active Substance: METOPROLOL
     Dosage: UNK
     Dates: start: 19900101
  4. KAIRASEC [Concomitant]
     Dosage: UNK
     Dates: start: 20110101

REACTIONS (2)
  - Fatigue [Unknown]
  - Tremor [Recovered/Resolved with Sequelae]
